FAERS Safety Report 23327138 (Version 1)
Quarter: 2023Q4

REPORT INFORMATION
  Report Type: Report from Study
  Country: CL (occurrence: CL)
  Receive Date: 20231221
  Receipt Date: 20231221
  Transmission Date: 20240109
  Serious: Yes (Other)
  Sender: FDA-Public Use
  Company Number: CL-JNJFOC-20231243880

PATIENT
  Age: 71 Year
  Sex: Female

DRUGS (3)
  1. SIMPONI [Suspect]
     Active Substance: GOLIMUMAB
     Indication: Psoriatic arthropathy
     Route: 058
     Dates: start: 20231107
  2. DULOXETINE [Concomitant]
     Active Substance: DULOXETINE
  3. CITONEURON [PREGABALIN] [Concomitant]

REACTIONS (11)
  - Immunosuppression [Unknown]
  - Renal impairment [Unknown]
  - Spinal disorder [Unknown]
  - Liver function test abnormal [Unknown]
  - Oral herpes [Unknown]
  - Eye infection [Unknown]
  - Tooth infection [Unknown]
  - Arthralgia [Recovering/Resolving]
  - Pain [Recovering/Resolving]
  - Dyspnoea [Recovering/Resolving]
  - Chest pain [Recovering/Resolving]

NARRATIVE: CASE EVENT DATE: 20230101
